FAERS Safety Report 15384829 (Version 12)
Quarter: 2021Q2

REPORT INFORMATION
  Report Type: Other
  Country: DE (occurrence: DE)
  Receive Date: 20180914
  Receipt Date: 20210525
  Transmission Date: 20210716
  Serious: Yes (Death, Hospitalization, Other)
  Sender: FDA-Public Use
  Company Number: DE-ROCHE-2184703

PATIENT
  Age: 40 Year
  Sex: Female
  Weight: 108 kg

DRUGS (109)
  1. DEXAMETHASONE. [Suspect]
     Active Substance: DEXAMETHASONE
     Route: 048
     Dates: start: 20180317, end: 20180324
  2. SYMBICORT [Concomitant]
     Active Substance: BUDESONIDE\FORMOTEROL FUMARATE DIHYDRATE
     Indication: ASTHMA
     Route: 048
     Dates: start: 20120101, end: 20180404
  3. LEVETIRACETAM. [Concomitant]
     Active Substance: LEVETIRACETAM
     Route: 048
     Dates: start: 20180324, end: 20180414
  4. LEVETIRACETAM. [Concomitant]
     Active Substance: LEVETIRACETAM
     Route: 058
     Dates: start: 20180415, end: 20180420
  5. PARACETAMOL [Concomitant]
     Active Substance: ACETAMINOPHEN
     Route: 042
     Dates: start: 20180318, end: 20180318
  6. THYMIAN [Concomitant]
     Indication: COUGH
     Route: 048
     Dates: start: 20180328, end: 20180328
  7. DIMENHYDRINAT [Concomitant]
     Active Substance: DIMENHYDRINATE
     Route: 042
     Dates: start: 20180403, end: 20180403
  8. HYDROMORPHONE [Concomitant]
     Active Substance: HYDROMORPHONE
     Route: 048
     Dates: start: 20180409, end: 20180409
  9. HYDROMORPHONE [Concomitant]
     Active Substance: HYDROMORPHONE
     Route: 048
     Dates: start: 20180415, end: 20180415
  10. MIDAZOLAM. [Concomitant]
     Active Substance: MIDAZOLAM
     Route: 048
     Dates: start: 20180408, end: 20180408
  11. LORAZEPAM. [Concomitant]
     Active Substance: LORAZEPAM
     Indication: RESTLESSNESS
     Route: 048
     Dates: start: 20180411, end: 20180411
  12. LORAZEPAM. [Concomitant]
     Active Substance: LORAZEPAM
     Route: 048
     Dates: start: 20180417, end: 20180417
  13. NOVALGIN (METAMIZOLE SODIUM) [Concomitant]
     Active Substance: METAMIZOLE SODIUM
     Route: 048
     Dates: start: 20180318, end: 20180318
  14. IBEROGAST [Concomitant]
     Active Substance: HERBALS
     Indication: NAUSEA
     Dates: start: 20180312, end: 20180315
  15. DEXAMETHASONE. [Suspect]
     Active Substance: DEXAMETHASONE
     Route: 048
     Dates: start: 20180321, end: 20180321
  16. DEXAMETHASONE. [Suspect]
     Active Substance: DEXAMETHASONE
     Route: 048
     Dates: start: 20180409, end: 20180411
  17. PREDNISOLON [Suspect]
     Active Substance: PREDNISOLONE
     Route: 048
     Dates: start: 20180205, end: 20180211
  18. LEVETIRACETAM. [Concomitant]
     Active Substance: LEVETIRACETAM
     Route: 058
     Dates: start: 20180421, end: 20180421
  19. PICOSALAX [Concomitant]
     Active Substance: ANHYDROUS CITRIC ACID\MAGNESIUM OXIDE\SODIUM PICOSULFATE
     Route: 048
     Dates: start: 20180406, end: 20180415
  20. CODEIN [Concomitant]
     Active Substance: CODEINE
     Route: 048
     Dates: start: 20180331, end: 20180331
  21. KALINOR [Concomitant]
     Route: 048
     Dates: start: 20180324, end: 20180326
  22. METAMIZOLE [Concomitant]
     Active Substance: METAMIZOLE
     Indication: PYREXIA
     Route: 048
     Dates: start: 20180321, end: 20180321
  23. DALTEPARIN [Concomitant]
     Active Substance: DALTEPARIN
     Route: 058
     Dates: start: 20180329, end: 20180415
  24. DIMENHYDRINAT [Concomitant]
     Active Substance: DIMENHYDRINATE
     Route: 048
     Dates: start: 20180405, end: 20180415
  25. HYDROMORPHONE [Concomitant]
     Active Substance: HYDROMORPHONE
     Indication: HEADACHE
     Route: 048
     Dates: start: 20180405, end: 20180405
  26. NEUROCIL (GERMANY) [Concomitant]
     Route: 048
     Dates: start: 20180408, end: 20180408
  27. TAVOR (LORAZEPAM) [Concomitant]
     Active Substance: LORAZEPAM
     Route: 058
     Dates: start: 20180417, end: 20180417
  28. COBIMETINIB. [Suspect]
     Active Substance: COBIMETINIB
     Route: 048
     Dates: start: 20180121
  29. VEMURAFENIB. [Suspect]
     Active Substance: VEMURAFENIB
     Route: 048
     Dates: start: 20180220, end: 20180222
  30. DEXAMETHASONE. [Suspect]
     Active Substance: DEXAMETHASONE
     Route: 048
     Dates: start: 20180202, end: 20180207
  31. DEXAMETHASONE. [Suspect]
     Active Substance: DEXAMETHASONE
     Route: 048
     Dates: start: 20180325, end: 20180328
  32. PREDNISOLON [Suspect]
     Active Substance: PREDNISOLONE
     Indication: PNEUMONITIS
     Route: 048
     Dates: start: 20180129, end: 20180204
  33. LEVETIRACETAM. [Concomitant]
     Active Substance: LEVETIRACETAM
     Indication: EPILEPSY
     Route: 048
     Dates: start: 20171101, end: 20180323
  34. RINGERS SOLUTION [Concomitant]
     Active Substance: CALCIUM CHLORIDE\POTASSIUM CHLORIDE\SODIUM CHLORIDE
     Indication: GENERAL PHYSICAL HEALTH DETERIORATION
     Route: 042
     Dates: start: 20180320, end: 20180323
  35. SULTANOL [Concomitant]
     Active Substance: ALBUTEROL SULFATE
     Indication: COUGH
     Route: 055
     Dates: start: 20180330, end: 20180404
  36. DIMENHYDRINAT [Concomitant]
     Active Substance: DIMENHYDRINATE
     Route: 048
     Dates: start: 20180330, end: 20180401
  37. NOVALGIN (METAMIZOLE SODIUM) [Concomitant]
     Active Substance: METAMIZOLE SODIUM
     Indication: GROIN PAIN
     Route: 048
     Dates: start: 20180317, end: 20180317
  38. CEFUROXIM [Concomitant]
     Active Substance: CEFUROXIME
     Route: 042
     Dates: start: 20180301, end: 20180304
  39. IBUPROFEN. [Concomitant]
     Active Substance: IBUPROFEN
     Route: 048
     Dates: start: 20180324, end: 20180324
  40. VEMURAFENIB. [Suspect]
     Active Substance: VEMURAFENIB
     Route: 048
     Dates: start: 20180220, end: 20180222
  41. DEXAMETHASONE. [Suspect]
     Active Substance: DEXAMETHASONE
     Route: 048
     Dates: start: 20180208, end: 20180214
  42. DEXAMETHASONE. [Suspect]
     Active Substance: DEXAMETHASONE
     Route: 048
     Dates: start: 20180315, end: 20180315
  43. CODEIN [Concomitant]
     Active Substance: CODEINE
     Indication: COUGH
     Route: 048
     Dates: start: 20180404, end: 20180404
  44. VOMEX [Concomitant]
     Active Substance: DIMENHYDRINATE
     Route: 042
     Dates: start: 20180317, end: 20180317
  45. HEPARIN [Concomitant]
     Active Substance: HEPARIN SODIUM
     Route: 058
     Dates: start: 20180319, end: 20180328
  46. RINGERS SOLUTION [Concomitant]
     Active Substance: CALCIUM CHLORIDE\POTASSIUM CHLORIDE\SODIUM CHLORIDE
     Route: 042
     Dates: start: 20180324, end: 20180324
  47. PARACETAMOL [Concomitant]
     Active Substance: ACETAMINOPHEN
     Indication: PYREXIA
     Route: 042
     Dates: start: 20180321, end: 20190322
  48. METAMIZOLE [Concomitant]
     Active Substance: METAMIZOLE
     Indication: NECK PAIN
     Route: 048
     Dates: start: 20180404, end: 20180404
  49. ONDASETRON [Concomitant]
     Active Substance: ONDANSETRON
     Indication: NAUSEA
     Route: 042
     Dates: start: 20180402, end: 20180402
  50. KALINOR [Concomitant]
     Indication: HYPOKALAEMIA
     Route: 048
     Dates: start: 20180404, end: 20180405
  51. HYDROMORPHONE [Concomitant]
     Active Substance: HYDROMORPHONE
     Route: 048
     Dates: start: 20180410, end: 20180414
  52. HYDROMORPHONE [Concomitant]
     Active Substance: HYDROMORPHONE
     Route: 058
     Dates: start: 20180415, end: 20180415
  53. THIAMIN [Concomitant]
     Active Substance: THIAMINE
     Route: 048
     Dates: start: 20180411, end: 20180416
  54. MIDAZOLAM. [Concomitant]
     Active Substance: MIDAZOLAM
     Route: 058
     Dates: start: 20180419, end: 20180421
  55. COBIMETINIB. [Suspect]
     Active Substance: COBIMETINIB
     Route: 048
     Dates: start: 20180220, end: 20180222
  56. VEMURAFENIB. [Suspect]
     Active Substance: VEMURAFENIB
     Route: 048
     Dates: start: 20180308, end: 20180316
  57. DEXAMETHASONE. [Suspect]
     Active Substance: DEXAMETHASONE
     Indication: METASTASES TO CENTRAL NERVOUS SYSTEM
     Route: 048
     Dates: start: 20180201, end: 20180201
  58. DEXAMETHASONE. [Suspect]
     Active Substance: DEXAMETHASONE
     Route: 048
     Dates: start: 20180414, end: 20180416
  59. PANTOPRAZOL [Concomitant]
     Active Substance: PANTOPRAZOLE SODIUM
     Indication: GASTROINTESTINAL DISORDER PROPHYLAXIS
     Route: 048
     Dates: start: 20170901, end: 20180415
  60. VOMEX [Concomitant]
     Active Substance: DIMENHYDRINATE
     Indication: NAUSEA
     Route: 042
     Dates: start: 20180321, end: 20180322
  61. THYMIAN [Concomitant]
     Indication: COUGH
     Route: 048
     Dates: start: 20180327, end: 20180327
  62. THYMIAN [Concomitant]
     Route: 048
     Dates: start: 20180329, end: 20180404
  63. ATROVENT [Concomitant]
     Active Substance: IPRATROPIUM BROMIDE
     Indication: COUGH
     Route: 055
     Dates: start: 20180330, end: 20180404
  64. HYDROMORPHONE [Concomitant]
     Active Substance: HYDROMORPHONE
     Route: 048
     Dates: start: 20180406, end: 20180408
  65. HYDROMORPHONE [Concomitant]
     Active Substance: HYDROMORPHONE
     Route: 048
     Dates: start: 20180409, end: 20180409
  66. HYDROMORPHONE [Concomitant]
     Active Substance: HYDROMORPHONE
     Route: 058
     Dates: start: 20180418, end: 20180419
  67. MIDAZOLAM. [Concomitant]
     Active Substance: MIDAZOLAM
     Indication: RESTLESSNESS
     Route: 058
     Dates: start: 20180417, end: 20180418
  68. MIDAZOLAM. [Concomitant]
     Active Substance: MIDAZOLAM
     Route: 058
     Dates: start: 20180420, end: 20180420
  69. POTASSIUM [Concomitant]
     Active Substance: POTASSIUM
     Indication: HYPOKALAEMIA
     Route: 048
     Dates: start: 20180412, end: 20180416
  70. NEUROCIL (GERMANY) [Concomitant]
     Indication: RESTLESSNESS
     Route: 058
     Dates: start: 20180413, end: 20180413
  71. TAVOR (LORAZEPAM) [Concomitant]
     Active Substance: LORAZEPAM
     Route: 058
     Dates: start: 20180416, end: 20180416
  72. COBIMETINIB. [Suspect]
     Active Substance: COBIMETINIB
     Indication: MALIGNANT MELANOMA
     Route: 048
     Dates: start: 20180202, end: 20180215
  73. COBIMETINIB. [Suspect]
     Active Substance: COBIMETINIB
     Route: 048
     Dates: start: 20180308, end: 20180316
  74. DEXAMETHASONE. [Suspect]
     Active Substance: DEXAMETHASONE
     Route: 048
     Dates: start: 20180412, end: 20180413
  75. LEVETIRACETAM. [Concomitant]
     Active Substance: LEVETIRACETAM
     Route: 048
     Dates: start: 20180415, end: 20180415
  76. CODEIN [Concomitant]
     Active Substance: CODEINE
     Route: 048
     Dates: start: 20180402, end: 20180402
  77. KALINOR [Concomitant]
     Indication: HYPOKALAEMIA
     Route: 048
     Dates: start: 20180323, end: 20180323
  78. KALINOR [Concomitant]
     Indication: HYPOCALCAEMIA
     Route: 048
     Dates: start: 20180324, end: 20180326
  79. RINGERS SOLUTION [Concomitant]
     Active Substance: CALCIUM CHLORIDE\POTASSIUM CHLORIDE\SODIUM CHLORIDE
     Route: 042
     Dates: start: 20180325, end: 20180325
  80. METAMIZOLE [Concomitant]
     Active Substance: METAMIZOLE
     Route: 058
     Dates: start: 20180416, end: 20180418
  81. DIMENHYDRINAT [Concomitant]
     Active Substance: DIMENHYDRINATE
     Indication: NAUSEA
     Route: 042
     Dates: start: 20180330, end: 20180331
  82. DIMENHYDRINAT [Concomitant]
     Active Substance: DIMENHYDRINATE
     Route: 054
     Dates: start: 20180401, end: 20180401
  83. HYDROMORPHONE [Concomitant]
     Active Substance: HYDROMORPHONE
     Route: 058
     Dates: start: 20180416, end: 20180417
  84. TAVOR (LORAZEPAM) [Concomitant]
     Active Substance: LORAZEPAM
     Indication: RESTLESSNESS
     Route: 058
     Dates: start: 20180415, end: 20180416
  85. CEFUROXIM [Concomitant]
     Active Substance: CEFUROXIME
     Indication: GROIN PAIN
     Route: 042
     Dates: start: 20180305, end: 20180305
  86. IBUPROFEN. [Concomitant]
     Active Substance: IBUPROFEN
     Indication: GROIN PAIN
     Route: 048
     Dates: start: 20180321, end: 20180323
  87. VEMURAFENIB. [Suspect]
     Active Substance: VEMURAFENIB
     Indication: MALIGNANT MELANOMA
     Route: 048
     Dates: start: 20180202, end: 20180215
  88. PREDNISOLON [Suspect]
     Active Substance: PREDNISOLONE
     Route: 048
     Dates: start: 20180212, end: 20180218
  89. PICOSALAX [Concomitant]
     Active Substance: ANHYDROUS CITRIC ACID\MAGNESIUM OXIDE\SODIUM PICOSULFATE
     Indication: CONSTIPATION
     Route: 048
     Dates: start: 20180408, end: 20180408
  90. CODEIN [Concomitant]
     Active Substance: CODEINE
     Dates: start: 20180329, end: 20180329
  91. ONDANSETRON [Concomitant]
     Active Substance: ONDANSETRON
     Indication: NAUSEA
     Route: 048
     Dates: start: 20180329, end: 20180329
  92. DIMENHYDRINAT [Concomitant]
     Active Substance: DIMENHYDRINATE
     Route: 054
     Dates: start: 20180402, end: 20180402
  93. METOCLOPRAMID [Concomitant]
     Active Substance: METOCLOPRAMIDE
     Indication: NAUSEA
     Route: 048
     Dates: start: 20180318, end: 20180318
  94. VEMURAFENIB. [Suspect]
     Active Substance: VEMURAFENIB
     Route: 048
     Dates: start: 20180216, end: 20180216
  95. VEMURAFENIB. [Suspect]
     Active Substance: VEMURAFENIB
     Route: 048
     Dates: start: 20180216, end: 20180216
  96. DEXAMETHASONE. [Suspect]
     Active Substance: DEXAMETHASONE
     Route: 058
     Dates: start: 20180417, end: 20180421
  97. PREDNISOLON [Suspect]
     Active Substance: PREDNISOLONE
     Route: 048
     Dates: start: 20180219, end: 20180225
  98. PICOSALAX [Concomitant]
     Active Substance: ANHYDROUS CITRIC ACID\MAGNESIUM OXIDE\SODIUM PICOSULFATE
     Indication: CONSTIPATION
     Route: 048
     Dates: start: 20180409, end: 20180414
  99. PICOSALAX [Concomitant]
     Active Substance: ANHYDROUS CITRIC ACID\MAGNESIUM OXIDE\SODIUM PICOSULFATE
     Route: 048
     Dates: start: 20180401, end: 20180402
  100. METAMIZOLE [Concomitant]
     Active Substance: METAMIZOLE
     Route: 058
     Dates: start: 20180417, end: 20180421
  101. DIMENHYDRINAT [Concomitant]
     Active Substance: DIMENHYDRINATE
     Route: 048
     Dates: start: 20180404, end: 20180404
  102. HYDROMORPHONE [Concomitant]
     Active Substance: HYDROMORPHONE
     Route: 058
     Dates: start: 20180418, end: 20180421
  103. HYDROMORPHONE [Concomitant]
     Active Substance: HYDROMORPHONE
     Route: 058
     Dates: start: 20180413, end: 20180413
  104. HYDROMORPHONE [Concomitant]
     Active Substance: HYDROMORPHONE
     Route: 058
     Dates: start: 20180413, end: 20180413
  105. HYDROMORPHONE [Concomitant]
     Active Substance: HYDROMORPHONE
     Route: 058
     Dates: start: 20180416, end: 20180416
  106. OTRIVEN [Concomitant]
     Active Substance: XYLOMETAZOLINE HYDROCHLORIDE
     Indication: DYSPNOEA
     Route: 045
     Dates: start: 20180415, end: 20180415
  107. CEFUROXIM [Concomitant]
     Active Substance: CEFUROXIME
     Route: 048
     Dates: start: 20180306
  108. MAGNETRANS FORTE [Concomitant]
     Active Substance: MAGNESIUM OXIDE
     Route: 048
     Dates: start: 20180318, end: 20180318
  109. PERFALGAN [Concomitant]
     Active Substance: ACETAMINOPHEN
     Route: 042
     Dates: start: 20180301, end: 20180302

REACTIONS (5)
  - Organic brain syndrome [Not Recovered/Not Resolved]
  - Disorientation [Not Recovered/Not Resolved]
  - Nervous system disorder [Not Recovered/Not Resolved]
  - Coma [Not Recovered/Not Resolved]
  - Death [Fatal]

NARRATIVE: CASE EVENT DATE: 20180322
